FAERS Safety Report 5474292-4 (Version None)
Quarter: 2007Q4

REPORT INFORMATION
  Report Type: 
  Country: None (occurrence: None)
  Receive Date: 20071002
  Receipt Date: 20070621
  Transmission Date: 20080405
  Serious: No
  Sender: FDA-Public Use
  Company Number: US-ASTRAZENECA-2007UW14944

PATIENT
  Age: 88 Year
  Sex: Female

DRUGS (5)
  1. ARIMIDEX [Suspect]
     Indication: BREAST CANCER
     Route: 048
     Dates: start: 20060201, end: 20070201
  2. MEVACOR [Concomitant]
  3. DIGOXIN [Concomitant]
  4. METOPROLOL [Concomitant]
  5. VITAMIN B-12 [Concomitant]

REACTIONS (9)
  - ALOPECIA [None]
  - CHEST PAIN [None]
  - CORRECTIVE LENS USER [None]
  - DYSPNOEA [None]
  - JOINT SWELLING [None]
  - MUSCLE SPASMS [None]
  - MYALGIA [None]
  - OEDEMA PERIPHERAL [None]
  - VEIN PAIN [None]
